FAERS Safety Report 5473436-8 (Version None)
Quarter: 2007Q3

REPORT INFORMATION
  Report Type: 
  Country: None (occurrence: None)
  Receive Date: 20070828
  Receipt Date: 20060705
  Transmission Date: 20080115
  Serious: Yes (Other)
  Sender: FDA-Public Use
  Company Number: PHEH2006US08689

PATIENT
  Sex: Male

DRUGS (6)
  1. FAMVIR [Suspect]
     Indication: HERPES ZOSTER
     Dosage: 500 MG, TID, ORAL
     Route: 048
     Dates: start: 20060628, end: 20060629
  2. COZAAR [Concomitant]
  3. COREG [Concomitant]
  4. PLAVIX [Concomitant]
  5. CRESTOR [Concomitant]
  6. ASPIRIN [Concomitant]

REACTIONS (1)
  - HALLUCINATION [None]
